FAERS Safety Report 18633576 (Version 2)
Quarter: 2021Q1

REPORT INFORMATION
  Report Type: Report from Study
  Country: NO (occurrence: NO)
  Receive Date: 20201218
  Receipt Date: 20210330
  Transmission Date: 20210419
  Serious: Yes (Death, Hospitalization)
  Sender: FDA-Public Use
  Company Number: NO-ROCHE-2730270

PATIENT
  Age: 77 Year
  Sex: Female
  Weight: 62.5 kg

DRUGS (19)
  1. PLATINUM [Suspect]
     Active Substance: PLATINUM
     Indication: SMALL CELL LUNG CANCER
     Dosage: ON 29/JUL/2020, SHE RECEIVED THE MOST RECENT DOSE OF PLATINUM.
     Route: 065
     Dates: start: 20200505
  2. INCRUSE ELLIPTA [Concomitant]
     Active Substance: UMECLIDINIUM BROMIDE
  3. NATRIUMPIKOSULFAT [Concomitant]
     Indication: CONSTIPATION
     Dosage: 7.5 MG/ML
  4. ETOPOSIDE. [Suspect]
     Active Substance: ETOPOSIDE
     Indication: SMALL CELL LUNG CANCER
     Dosage: ON 29/JUL/2020, SHE RECEIVED THE MOST RECENT DOSE OF ETOPOSIDE.
     Route: 065
     Dates: start: 20200505
  5. MESALAZINE [Concomitant]
     Active Substance: MESALAMINE
     Indication: COLITIS ULCERATIVE
  6. RELVAR ELLIPTA [Concomitant]
     Active Substance: FLUTICASONE FUROATE\VILANTEROL TRIFENATATE
     Indication: ASTHMA
     Dosage: 184 MCG/22 MCG
  7. LACTULOSE. [Concomitant]
     Active Substance: LACTULOSE
     Dosage: 650 MG/ML
  8. GLYCERYL TRINITRATE [Concomitant]
     Active Substance: NITROGLYCERIN
  9. SALBUTAMOL [Concomitant]
     Active Substance: ALBUTEROL
     Indication: ASTHMA
  10. SIMVASTATIN. [Concomitant]
     Active Substance: SIMVASTATIN
  11. METOKLOPRAMID [Concomitant]
  12. ACETYLCYSTEINE. [Concomitant]
     Active Substance: ACETYLCYSTEINE
  13. ATEZOLIZUMAB. [Suspect]
     Active Substance: ATEZOLIZUMAB
     Indication: SMALL CELL LUNG CANCER
     Dosage: 4 COURSES?ON 03/NOV/2020, SHE RECEIVED THE MOST RECENT DOSE OF ATEZOLIZUMAB.
     Route: 042
     Dates: start: 20200901
  14. PANTOPRAZOLE [Concomitant]
     Active Substance: PANTOPRAZOLE
     Indication: OESOPHAGITIS
  15. KLOPIDOGREL [Concomitant]
  16. PARACETAMOL [Concomitant]
     Active Substance: ACETAMINOPHEN
  17. EZETIMIBE. [Concomitant]
     Active Substance: EZETIMIBE
  18. MACROGOL [Concomitant]
     Active Substance: POLYETHYLENE GLYCOLS
  19. KIOVIG [Concomitant]
     Active Substance: HUMAN IMMUNOGLOBULIN G
     Route: 042
     Dates: start: 20201124

REACTIONS (2)
  - Dizziness [Fatal]
  - Confusional state [Fatal]

NARRATIVE: CASE EVENT DATE: 20201112
